FAERS Safety Report 9331274 (Version 1)
Quarter: 2013Q2

REPORT INFORMATION
  Report Type: Spontaneous
  Country: US (occurrence: US)
  Receive Date: 20130605
  Receipt Date: 20130605
  Transmission Date: 20140414
  Serious: No
  Sender: FDA-Public Use
  Company Number: US-VERTEX PHARMACEUTICALS INC-2013-006661

PATIENT
  Age: 24 Year
  Sex: Female
  Weight: 82 kg

DRUGS (9)
  1. INCIVEK [Suspect]
     Indication: HEPATITIS C
     Dosage: 750 MG, TID
     Route: 048
     Dates: start: 20130419
  2. RIBAVIRIN [Suspect]
     Indication: HEPATITIS C
     Dosage: 600 MG, BID
     Route: 048
     Dates: start: 20130419
  3. PEGASYS [Suspect]
     Indication: HEPATITIS C
     Dosage: 180 ?G, QW
     Route: 058
     Dates: start: 20130419
  4. TRIAMCINOLONE [Concomitant]
     Indication: ECZEMA
     Dosage: AS DIRECTED
     Route: 061
  5. TRIAMCINOLONE [Concomitant]
     Indication: RASH PRURITIC
  6. NOVOLIN R [Concomitant]
     Indication: TYPE 2 DIABETES MELLITUS
     Dosage: AS DIRECTED
  7. METHADONE [Concomitant]
     Indication: DRUG DEPENDENCE
     Dosage: 80 MG, QD
     Route: 048
  8. KLONOPIN [Concomitant]
     Indication: ANXIETY
     Dosage: 1 MG, TID
     Route: 048
  9. ZOLOFT [Concomitant]
     Dosage: UNK
     Dates: start: 201304, end: 20130524

REACTIONS (11)
  - Viral infection [Unknown]
  - Restless legs syndrome [Not Recovered/Not Resolved]
  - Muscular weakness [Not Recovered/Not Resolved]
  - Crying [Recovered/Resolved]
  - Insomnia [Not Recovered/Not Resolved]
  - Pyrexia [Recovered/Resolved]
  - Decreased appetite [Not Recovered/Not Resolved]
  - Rash pruritic [Not Recovered/Not Resolved]
  - Pruritus generalised [Not Recovered/Not Resolved]
  - Vomiting [Recovered/Resolved]
  - Nausea [Not Recovered/Not Resolved]
